FAERS Safety Report 8478964-9 (Version None)
Quarter: 2012Q2

REPORT INFORMATION
  Report Type: 
  Country: None (occurrence: None)
  Receive Date: 20120629
  Receipt Date: 20120621
  Transmission Date: 20120825
  Serious: Yes (Other)
  Sender: FDA-Public Use
  Company Number: US-BAYER-2012-061893

PATIENT
  Age: 64 Year
  Sex: Male
  Weight: 100 kg

DRUGS (7)
  1. ALPRAZOLAM [Suspect]
  2. LISINOPRIL [Suspect]
  3. LISINOPRIL [Concomitant]
  4. ZOLOFT [Suspect]
     Indication: POST-TRAUMATIC STRESS DISORDER
     Dosage: DAILY DOSE 200 MG
     Dates: start: 20080401
  5. METOPROLOL SUCCINATE [Concomitant]
  6. ZESTRIL [Concomitant]
  7. ASPIRIN [Suspect]
     Indication: PRODUCT USED FOR UNKNOWN INDICATION

REACTIONS (3)
  - CARDIAC DISORDER [None]
  - MYOCARDIAL INFARCTION [None]
  - BLOOD CHOLESTEROL INCREASED [None]
